FAERS Safety Report 8894415 (Version 2)
Quarter: 2013Q1

REPORT INFORMATION
  Report Type: Report from Study
  Country: JP (occurrence: JP)
  Receive Date: 20121108
  Receipt Date: 20130306
  Transmission Date: 20140127
  Serious: Yes (Hospitalization)
  Sender: FDA-Public Use
  Company Number: JP-009507513-1210JPN014690

PATIENT
  Age: 65 Year
  Sex: Male
  Weight: 66 kg

DRUGS (16)
  1. PEGINTRON [Suspect]
     Indication: CHRONIC HEPATITIS C
     Dosage: 1.5 UG/KG, QW
     Route: 058
     Dates: start: 20120801, end: 20120830
  2. PEGINTRON [Suspect]
     Dosage: 1.5 UG/KG, QW
     Route: 058
     Dates: start: 20120906, end: 20130111
  3. REBETOL [Suspect]
     Indication: CHRONIC HEPATITIS C
     Dosage: 800 MG, QD
     Route: 048
     Dates: start: 20120801, end: 20120822
  4. REBETOL [Suspect]
     Dosage: 600 MG, QD
     Route: 048
     Dates: start: 20120823, end: 20120830
  5. REBETOL [Suspect]
     Dosage: 600 MG, QD
     Route: 048
     Dates: start: 20120906, end: 20120908
  6. REBETOL [Suspect]
     Dosage: 400 MG, QD
     Route: 048
     Dates: start: 20120914, end: 20121206
  7. REBETOL [Suspect]
     Dosage: 600 UNK, UNK
     Route: 048
     Dates: start: 20121207, end: 20130118
  8. REBETOL [Suspect]
     Dosage: UNK
  9. TELAVIC [Suspect]
     Indication: CHRONIC HEPATITIS C
     Dosage: 1500 MG, QD
     Route: 048
     Dates: start: 20120801, end: 20120830
  10. TELAVIC [Suspect]
     Dosage: 1500 MG, QD
     Route: 048
     Dates: start: 20120906, end: 20120908
  11. TELAVIC [Suspect]
     Dosage: 1000MG, QD
     Route: 048
     Dates: start: 20120914, end: 20121025
  12. MUCOSTA [Concomitant]
     Indication: PROPHYLAXIS
     Dosage: 100 MG, PRN
     Route: 048
     Dates: start: 20120801, end: 20120830
  13. MUCOSTA [Concomitant]
     Dosage: 100 MG, PRN
     Route: 048
  14. MUCOSTA [Concomitant]
     Dosage: 100 MG, PRN
     Route: 048
  15. MUCOSTA [Concomitant]
     Dosage: 100 MG, PRN
     Route: 048
  16. HORIZON [Concomitant]
     Dosage: 5 MG/DAY, PRN, FORMULATION:POR
     Route: 048
     Dates: start: 20120910, end: 20120917

REACTIONS (2)
  - Decreased appetite [Not Recovered/Not Resolved]
  - Depression [Not Recovered/Not Resolved]
